FAERS Safety Report 8697402 (Version 2)
Quarter: 2014Q2

REPORT INFORMATION
  Report Type: Report from Study
  Country: CA (occurrence: CA)
  Receive Date: 20120801
  Receipt Date: 20140501
  Transmission Date: 20141212
  Serious: Yes (Other)
  Sender: FDA-Public Use
  Company Number: CA-JNJFOC-20120702626

PATIENT
  Age: 40 Year
  Sex: Female
  Weight: 59.2 kg

DRUGS (3)
  1. REMICADE [Suspect]
     Indication: CROHN^S DISEASE
     Route: 042
  2. REMICADE [Suspect]
     Indication: CROHN^S DISEASE
     Route: 042
     Dates: start: 20120417
  3. PREDNISONE [Concomitant]
     Route: 065

REACTIONS (1)
  - Intestinal resection [Recovering/Resolving]
